FAERS Safety Report 4839378-3 (Version None)
Quarter: 2005Q4

REPORT INFORMATION
  Report Type: 
  Country: None (occurrence: None)
  Receive Date: 20051129
  Receipt Date: 20050217
  Transmission Date: 20060501
  Serious: No
  Sender: FDA-Public Use
  Company Number: US-GLAXOSMITHKLINE-A0546023A

PATIENT
  Age: 51 Year
  Sex: Female
  Weight: 56.4 kg

DRUGS (1)
  1. WELLBUTRIN SR [Suspect]
     Dosage: 150MG ALTERNATE DAYS
     Route: 048
     Dates: start: 20041201

REACTIONS (2)
  - SOMNOLENCE [None]
  - THERAPEUTIC RESPONSE UNEXPECTED [None]
